FAERS Safety Report 6168753-2 (Version None)
Quarter: 2009Q2

REPORT INFORMATION
  Report Type: 
  Country: None (occurrence: None)
  Receive Date: 20090427
  Receipt Date: 20090422
  Transmission Date: 20091009
  Serious: Yes (Hospitalization)
  Sender: FDA-Public Use
  Company Number: US-MERCK-0904USA03532

PATIENT
  Age: 55 Year
  Sex: Female

DRUGS (14)
  1. VYTORIN [Suspect]
     Indication: BLOOD CHOLESTEROL INCREASED
     Route: 048
     Dates: start: 20070101, end: 20081127
  2. SANDIMMUNE [Concomitant]
     Route: 065
  3. PREDNISONE [Concomitant]
     Route: 065
  4. LASIX [Concomitant]
     Route: 065
  5. POTASSIUM (UNSPECIFIED) [Concomitant]
     Route: 065
  6. PLAVIX [Concomitant]
     Route: 065
  7. LORAZEPAM [Concomitant]
     Route: 065
  8. ASPIRIN [Concomitant]
     Route: 065
  9. SYNTHROID [Concomitant]
     Route: 065
  10. PRILOSEC [Concomitant]
     Route: 065
  11. PREVENTOL G-D [Concomitant]
     Route: 065
  12. AZMACORT [Concomitant]
     Route: 065
  13. MACRODANTIN [Concomitant]
     Route: 065
  14. SPIRIVA [Concomitant]
     Route: 065

REACTIONS (3)
  - ABASIA [None]
  - BALANCE DISORDER [None]
  - MOVEMENT DISORDER [None]
